FAERS Safety Report 6851562-6 (Version None)
Quarter: 2010Q3

REPORT INFORMATION
  Report Type: 
  Country: None (occurrence: None)
  Receive Date: 20100717
  Receipt Date: 20080116
  Transmission Date: 20110219
  Serious: No
  Sender: FDA-Public Use
  Company Number: US-PFIZER INC-2008007314

PATIENT
  Sex: Female
  Weight: 69.09 kg

DRUGS (6)
  1. CHANTIX [Suspect]
     Indication: SMOKING CESSATION THERAPY
     Dates: start: 20080116
  2. METFORMIN HCL [Interacting]
     Indication: DIABETES MELLITUS
  3. RITALIN [Concomitant]
  4. CRESTOR [Concomitant]
  5. TRAMADOL [Concomitant]
  6. ATENOLOL [Concomitant]

REACTIONS (2)
  - BLOOD GLUCOSE DECREASED [None]
  - DRUG INTERACTION [None]
